FAERS Safety Report 7806059-3 (Version None)
Quarter: 2011Q4

REPORT INFORMATION
  Report Type: 
  Country: None (occurrence: None)
  Receive Date: 20111007
  Receipt Date: 20111007
  Transmission Date: 20120403
  Serious: No
  Sender: FDA-Public Use
  Company Number: None

PATIENT
  Sex: Male
  Weight: 79.8331 kg

DRUGS (4)
  1. PREDNISONE [Concomitant]
  2. METHOTREXATE [Suspect]
     Indication: RHEUMATOID ARTHRITIS
  3. TRAMADOL HCL [Concomitant]
  4. FOLIC ACID [Concomitant]

REACTIONS (5)
  - SWELLING FACE [None]
  - HERPES OPHTHALMIC [None]
  - PAPULE [None]
  - OCULAR HYPERAEMIA [None]
  - EYE SWELLING [None]
